FAERS Safety Report 9656533 (Version 6)
Quarter: 2018Q2

REPORT INFORMATION
  Report Type: Spontaneous
  Country: US (occurrence: US)
  Receive Date: 20131030
  Receipt Date: 20180511
  Transmission Date: 20180711
  Serious: Yes (Hospitalization, Other)
  Sender: FDA-Public Use
  Company Number: US-009507513-1204USA01797

PATIENT
  Sex: Female
  Weight: 71.65 kg

DRUGS (12)
  1. EVISTA [Concomitant]
     Active Substance: RALOXIFENE HYDROCHLORIDE
     Indication: OSTEOPENIA
     Dosage: 60 MG, QD
     Route: 065
  2. ALENDRONATE SODIUM. [Suspect]
     Active Substance: ALENDRONATE SODIUM
     Indication: OSTEOPENIA
     Dosage: 70 MG, QW
     Route: 048
     Dates: start: 200804, end: 201005
  3. CALCIUM (UNSPECIFIED) (+) VITAMIN D (UNSPECIFIED) [Concomitant]
     Active Substance: CALCIUM CARBONATE\VITAMIN D
     Indication: OSTEOPENIA
     Dosage: 600MG/800 IU, TWO DAILY
     Route: 048
  4. VITAMINS (UNSPECIFIED) [Concomitant]
     Active Substance: VITAMINS
     Indication: PRODUCT USED FOR UNKNOWN INDICATION
     Dosage: 1 DAILY
     Route: 048
     Dates: start: 1998
  5. FOSAMAX [Suspect]
     Active Substance: ALENDRONATE SODIUM
     Indication: OSTEOPENIA
     Dosage: 70 MG, QW
     Route: 048
     Dates: start: 20040203, end: 2010
  6. [THERAPY UNSPECIFIED] [Concomitant]
     Active Substance: UNSPECIFIED INGREDIENT
     Indication: PRODUCT USED FOR UNKNOWN INDICATION
     Route: 065
  7. NEURONTIN [Concomitant]
     Active Substance: GABAPENTIN
     Indication: SCIATICA
     Dosage: 100 MG, HS
     Route: 065
     Dates: start: 20040129
  8. CALCIUM (UNSPECIFIED) [Concomitant]
     Active Substance: CALCIUM
     Indication: PRODUCT USED FOR UNKNOWN INDICATION
     Dosage: 600MG, 1 DAILY
     Route: 048
     Dates: start: 2010
  9. CHLORDIAZEPOXIDE. [Concomitant]
     Active Substance: CHLORDIAZEPOXIDE
     Indication: ANXIETY
     Dosage: 5 MG, QD PRN
     Route: 065
  10. CELEBREX [Concomitant]
     Active Substance: CELECOXIB
     Indication: MUSCULOSKELETAL PAIN
  11. ALENDRONATE SODIUM. [Suspect]
     Active Substance: ALENDRONATE SODIUM
     Indication: OSTEOPENIA
     Dosage: 70 MG, UNK
     Route: 065
     Dates: start: 20091112, end: 20100430
  12. CELEBREX [Concomitant]
     Active Substance: CELECOXIB
     Indication: ARTHRALGIA
     Route: 065

REACTIONS (29)
  - Femur fracture [Recovered/Resolved]
  - Intervertebral disc protrusion [Unknown]
  - Muscular weakness [Unknown]
  - Uterine disorder [Unknown]
  - Palpitations [Unknown]
  - Fall [Unknown]
  - Limb injury [Unknown]
  - Bone disorder [Unknown]
  - Femur fracture [Unknown]
  - Fall [Unknown]
  - Osteoarthritis [Unknown]
  - Depression [Unknown]
  - Hand fracture [Unknown]
  - Inflammation [Unknown]
  - Poor quality sleep [Unknown]
  - Intervertebral disc degeneration [Unknown]
  - Back disorder [Unknown]
  - Osteoma [Unknown]
  - Lumbar vertebral fracture [Unknown]
  - Low turnover osteopathy [Unknown]
  - Tooth infection [Unknown]
  - Heart rate decreased [Unknown]
  - Femur fracture [Unknown]
  - Hysterectomy [Unknown]
  - Gastrooesophageal reflux disease [Unknown]
  - Urinary incontinence [Unknown]
  - Hyperlipidaemia [Unknown]
  - Migraine [Unknown]
  - Pain in extremity [Unknown]

NARRATIVE: CASE EVENT DATE: 2004
